FAERS Safety Report 19738927 (Version 1)
Quarter: 2021Q3

REPORT INFORMATION
  Report Type: Spontaneous
  Country: CN (occurrence: CN)
  Receive Date: 20210823
  Receipt Date: 20210823
  Transmission Date: 20211014
  Serious: Yes (Other)
  Sender: FDA-Public Use
  Company Number: CN-GUERBET-CN-20210205

PATIENT
  Age: 55 Year
  Sex: Male

DRUGS (4)
  1. IOVERSOL [Suspect]
     Active Substance: IOVERSOL
     Indication: ANGIOGRAM
     Route: 065
  2. METFORMIN [Concomitant]
     Active Substance: METFORMIN HYDROCHLORIDE
     Indication: DIABETES MELLITUS
     Route: 065
  3. ACARBOSE. [Concomitant]
     Active Substance: ACARBOSE
     Indication: DIABETES MELLITUS
     Route: 065
  4. IOVERSOL [Suspect]
     Active Substance: IOVERSOL
     Indication: ARTERIOGRAM RENAL

REACTIONS (3)
  - Product use issue [Unknown]
  - Contrast encephalopathy [Unknown]
  - Diplopia [Recovered/Resolved]
